FAERS Safety Report 4887565-0 (Version None)
Quarter: 2006Q1

REPORT INFORMATION
  Report Type: 
  Country: None (occurrence: None)
  Receive Date: 20060118
  Receipt Date: 20060105
  Transmission Date: 20060701
  Serious: Yes (Hospitalization)
  Sender: FDA-Public Use
  Company Number: JP200601001184

PATIENT
  Age: 54 Year
  Sex: Male
  Weight: 62.8 kg

DRUGS (5)
  1. GEMZAR [Suspect]
     Indication: NON-SMALL CELL LUNG CANCER STAGE IV
     Dosage: 1700 MG, OTHER, INTRAVENOUS
     Route: 042
     Dates: start: 20050810, end: 20050824
  2. DEXAMETHASONE [Concomitant]
  3. SODIUM CHLORIDE 0.9% [Concomitant]
  4. DROCHLORIDE (ONDANSETRON HYDROCHLORIDE) [Concomitant]
  5. METOCLOPRAMIDE HYDROCHLORIDE [Concomitant]

REACTIONS (5)
  - ALANINE AMINOTRANSFERASE INCREASED [None]
  - BLOOD ALKALINE PHOSPHATASE INCREASED [None]
  - LUNG INFILTRATION [None]
  - PNEUMONIA [None]
  - PNEUMONITIS [None]
